FAERS Safety Report 6124877-7 (Version None)
Quarter: 2009Q1

REPORT INFORMATION
  Report Type: 
  Country: None (occurrence: None)
  Receive Date: 20090319
  Receipt Date: 20090310
  Transmission Date: 20090719
  Serious: Yes (Death)
  Sender: FDA-Public Use
  Company Number: JP-BAXTER-2009BH003913

PATIENT
  Age: 2 Day
  Sex: Male
  Weight: 10 kg

DRUGS (1)
  1. ADVATE [Suspect]
     Indication: FACTOR VIII DEFICIENCY
     Route: 042
     Dates: start: 20070729, end: 20090303

REACTIONS (2)
  - HYPOPITUITARISM [None]
  - PULMONARY FIBROSIS [None]
